FAERS Safety Report 22098367 (Version 2)
Quarter: 2023Q1

REPORT INFORMATION
  Report Type: Report from Study
  Country: HN (occurrence: HN)
  Receive Date: 20230315
  Receipt Date: 20230323
  Transmission Date: 20230418
  Serious: Yes (Other)
  Sender: FDA-Public Use
  Company Number: HN-MYLANLABS-2023M1026921

PATIENT
  Sex: Male
  Weight: 84.82 kg

DRUGS (1)
  1. LIPITOR [Suspect]
     Active Substance: ATORVASTATIN CALCIUM
     Indication: Arrhythmia
     Dosage: 40 MILLIGRAM, QOD
     Route: 048

REACTIONS (2)
  - Arrhythmia [Unknown]
  - Drug ineffective for unapproved indication [Unknown]
